FAERS Safety Report 7168468-8 (Version None)
Quarter: 2010Q4

REPORT INFORMATION
  Report Type: 
  Country: None (occurrence: None)
  Receive Date: 20101216
  Receipt Date: 20100107
  Transmission Date: 20110411
  Serious: No
  Sender: FDA-Public Use
  Company Number: US-AMGEN-KDL384218

PATIENT

DRUGS (12)
  1. ENBREL [Suspect]
     Indication: PRODUCT USED FOR UNKNOWN INDICATION
     Dosage: 50 MG, 2 TIMES/WK
     Route: 058
  2. CLOBETASOL [Concomitant]
     Dosage: UNK UNK, UNK
  3. ALBUTEROL SULFATE [Concomitant]
     Dosage: 90 A?G, UNK
  4. FLUTICASONE/SALMETEROL [Concomitant]
  5. THIAMINE HYDROCHLORIDE [Concomitant]
     Dosage: 100 MG, UNK
  6. TOCOPHEROL CONCENTRATE CAP [Concomitant]
     Dosage: UNK UNK, UNK
  7. HYDROQUINONE [Concomitant]
     Dosage: UNK UNK, UNK
  8. ESCITALOPRAM [Concomitant]
     Dosage: 10 MG, UNK
  9. ERGOCALCIFEROL [Concomitant]
     Dosage: UNK UNK, UNK
  10. FISH OIL [Concomitant]
     Dosage: 1200 MG, UNK
  11. ASCORBIC ACID [Concomitant]
     Dosage: 500 MG, UNK
  12. UNSPECIFIED MEDICATION [Concomitant]

REACTIONS (1)
  - INFECTION [None]
